FAERS Safety Report 9708993 (Version 2)
Quarter: 2014Q1

REPORT INFORMATION
  Report Type: Spontaneous
  Country: FR (occurrence: FR)
  Receive Date: 20131125
  Receipt Date: 20140225
  Transmission Date: 20141002
  Serious: Yes (Hospitalization)
  Sender: FDA-Public Use
  Company Number: FR-VERTEX PHARMACEUTICALS INC-2013-011365

PATIENT
  Age: 53 Year
  Sex: Male

DRUGS (6)
  1. PEGASYS [Suspect]
     Indication: HEPATITIS C
     Dosage: DOSAGE FORM: SOLUTION FOR INJECTION
     Dates: start: 20130206
  2. COPEGUS [Suspect]
     Indication: HEPATITIS C
     Dosage: DOSAGE FORM: UNSPECIFIED
     Route: 048
     Dates: start: 20130206
  3. MIANSERIN [Concomitant]
  4. ATARAX [Concomitant]
  5. REBETOL [Concomitant]
  6. INCIVO [Suspect]
     Indication: HEPATITIS C
     Dosage: 2250 MG, UNK
     Route: 048

REACTIONS (3)
  - Tuberculous pleurisy [Not Recovered/Not Resolved]
  - Pulmonary tuberculosis [Not Recovered/Not Resolved]
  - Pleural effusion [Recovered/Resolved]
